FAERS Safety Report 8328142-9 (Version None)
Quarter: 2012Q2

REPORT INFORMATION
  Report Type: 
  Country: None (occurrence: None)
  Receive Date: 20120502
  Receipt Date: 20120427
  Transmission Date: 20120825
  Serious: Yes (Other)
  Sender: FDA-Public Use
  Company Number: PHHY2012CA036789

PATIENT
  Sex: Female
  Weight: 56 kg

DRUGS (11)
  1. ZOLEDRONOC ACID [Suspect]
     Indication: OSTEOPOROSIS
     Route: 042
     Dates: start: 20100316
  2. VITAMIN D [Concomitant]
  3. ACTONEL [Concomitant]
     Dosage: 70 MG, UNK
     Dates: start: 19970101
  4. MIACALCIN [Concomitant]
     Dosage: 200 IU, UNK
  5. ZOLEDRONOC ACID [Suspect]
     Route: 042
     Dates: start: 20110315
  6. ZOLEDRONOC ACID [Suspect]
     Route: 042
     Dates: start: 20120313
  7. FORTEO [Concomitant]
  8. HORMONES NOS [Concomitant]
  9. DIDROCAL [Concomitant]
     Dosage: 400 MG, UNK
  10. EVISTA [Concomitant]
     Dosage: 670 MG, UNK
  11. CALCIUM [Concomitant]

REACTIONS (3)
  - THORACIC VERTEBRAL FRACTURE [None]
  - BONE DENSITY DECREASED [None]
  - OSTEOPOROTIC FRACTURE [None]
